FAERS Safety Report 16297091 (Version 2)
Quarter: 2019Q2

REPORT INFORMATION
  Report Type: Spontaneous
  Country: US (occurrence: US)
  Receive Date: 20190510
  Receipt Date: 20190621
  Transmission Date: 20190711
  Serious: Yes (Other)
  Sender: FDA-Public Use
  Company Number: US-ALKERMES INC.-ALK-2019-002526

PATIENT
  Age: 46 Year
  Sex: Male
  Weight: 86.17 kg

DRUGS (2)
  1. VIVITROL [Suspect]
     Active Substance: NALTREXONE
     Indication: ALCOHOLISM
     Dosage: 380 MG, QMO
     Route: 030
     Dates: start: 201904, end: 20190506
  2. SEROQUEL [Suspect]
     Active Substance: QUETIAPINE FUMARATE
     Indication: PRODUCT USED FOR UNKNOWN INDICATION
     Dosage: 600 MG, HS

REACTIONS (4)
  - Hepatitis B [Not Recovered/Not Resolved]
  - Hepatic enzyme increased [Recovering/Resolving]
  - Hepatitis C [Not Recovered/Not Resolved]
  - Pancreatitis [Recovering/Resolving]

NARRATIVE: CASE EVENT DATE: 2019
